FAERS Safety Report 7337900-9 (Version None)
Quarter: 2011Q1

REPORT INFORMATION
  Report Type: 
  Country: None (occurrence: None)
  Receive Date: 20110308
  Receipt Date: 20110228
  Transmission Date: 20110831
  Serious: Yes (Hospitalization, Other)
  Sender: FDA-Public Use
  Company Number: US-ROCHE-762940

PATIENT
  Sex: Female
  Weight: 47.6 kg

DRUGS (15)
  1. OXYBUTYNIN [Concomitant]
  2. VITAMIN B COMPLEX CAP [Concomitant]
  3. DEXTROMETHORPHAN HYDROBROMIDE [Concomitant]
  4. PROPRANOLOL [Concomitant]
  5. SENNA [Concomitant]
  6. BONIVA [Suspect]
     Indication: OSTEOPOROSIS
     Route: 048
  7. FLAXSEED [Concomitant]
     Dosage: FLAXSEED OIL
  8. COCONUT OIL [Concomitant]
  9. CHLORPHENIRAMINE MALEATE [Concomitant]
  10. LISINOPRIL [Concomitant]
  11. NAMENDA [Concomitant]
  12. VITAMIN D [Concomitant]
  13. CALCIUM [Concomitant]
  14. NORVASC [Concomitant]
  15. ARICEPT [Concomitant]

REACTIONS (4)
  - FALL [None]
  - EPISTAXIS [None]
  - THROMBOSIS [None]
  - CONTUSION [None]
